FAERS Safety Report 8906643 (Version 1)
Quarter: 2012Q4

REPORT INFORMATION
  Report Type: 
  Country: US (occurrence: US)
  Receive Date: 20121114
  Receipt Date: 20121114
  Transmission Date: 20130627
  Serious: Yes (Hospitalization, Other)
  Sender: FDA-Public Use
  Company Number: US-ELI_LILLY_AND_COMPANY-US201211000596

PATIENT
  Sex: Female

DRUGS (1)
  1. HUMALOG LISPRO [Suspect]
     Indication: DIABETES MELLITUS
     Dosage: UNK UNK, prn

REACTIONS (7)
  - Leg amputation [Unknown]
  - Myocardial infarction [Unknown]
  - Renal failure [Unknown]
  - Hospitalisation [Unknown]
  - Hypoacusis [Not Recovered/Not Resolved]
  - Tympanic membrane perforation [Unknown]
  - Confusional state [Unknown]
